FAERS Safety Report 8618604-9 (Version None)
Quarter: 2012Q3

REPORT INFORMATION
  Report Type: 
  Country: None (occurrence: None)
  Receive Date: 20120824
  Receipt Date: 20120820
  Transmission Date: 20120928
  Serious: No
  Sender: FDA-Public Use
  Company Number: US-PFIZER INC-2012204692

PATIENT
  Age: 66 Year
  Sex: Female

DRUGS (1)
  1. INLYTA [Suspect]
     Indication: RENAL CANCER
     Dosage: 5 MG, 2X/DAY
     Dates: start: 20120801

REACTIONS (10)
  - CHILLS [None]
  - DYSPHONIA [None]
  - NAUSEA [None]
  - MUSCLE SPASTICITY [None]
  - VISION BLURRED [None]
  - EYE PAIN [None]
  - DECREASED APPETITE [None]
  - TOOTHACHE [None]
  - HEADACHE [None]
  - DIARRHOEA [None]
